FAERS Safety Report 23683829 (Version 1)
Quarter: 2024Q1

REPORT INFORMATION
  Report Type: Other
  Country: CN (occurrence: CN)
  Receive Date: 20240328
  Receipt Date: 20240328
  Transmission Date: 20240410
  Serious: Yes (Life-Threatening, Other)
  Sender: FDA-Public Use
  Company Number: CN-GE HEALTHCARE-2024CSU002861

PATIENT
  Age: 55 Year
  Sex: Female
  Weight: 67 kg

DRUGS (3)
  1. OMNIPAQUE [Suspect]
     Active Substance: IOHEXOL
     Indication: Venogram
     Dosage: 10 ML, TOTAL
     Route: 042
     Dates: start: 20240303, end: 20240303
  2. OMNIPAQUE [Suspect]
     Active Substance: IOHEXOL
     Indication: Vena cava filter removal
  3. OMNIPAQUE [Suspect]
     Active Substance: IOHEXOL
     Indication: Thrombectomy

REACTIONS (6)
  - Dysphoria [Recovering/Resolving]
  - Blood pressure decreased [Recovering/Resolving]
  - Tachypnoea [Recovering/Resolving]
  - Cyanosis [Recovering/Resolving]
  - Rash erythematous [Recovering/Resolving]
  - Flushing [Recovering/Resolving]

NARRATIVE: CASE EVENT DATE: 20240303
